FAERS Safety Report 7723319-5 (Version None)
Quarter: 2011Q3

REPORT INFORMATION
  Report Type: 
  Country: None (occurrence: None)
  Receive Date: 20110901
  Receipt Date: 20110901
  Transmission Date: 20111222
  Serious: Yes (Other)
  Sender: FDA-Public Use
  Company Number: None

PATIENT
  Age: 63 Year
  Sex: Female
  Weight: 83.914 kg

DRUGS (1)
  1. POLYETHYLENE GLYCOL [Suspect]
     Indication: CONSTIPATION
     Dosage: 1 CAPFUL
     Route: 048
     Dates: start: 20110826, end: 20110826

REACTIONS (5)
  - URTICARIA [None]
  - DISCOMFORT [None]
  - PYREXIA [None]
  - PRURITUS [None]
  - HEADACHE [None]
